FAERS Safety Report 6962911-2 (Version None)
Quarter: 2010Q3

REPORT INFORMATION
  Report Type: 
  Country: None (occurrence: None)
  Receive Date: 20100902
  Receipt Date: 20100825
  Transmission Date: 20110219
  Serious: No
  Sender: FDA-Public Use
  Company Number: US-PFIZER INC-2010107383

PATIENT
  Sex: Female
  Weight: 56.689 kg

DRUGS (1)
  1. CELEBREX [Suspect]
     Indication: MUSCULOSKELETAL PAIN
     Dosage: 200 MG, 1X/DAY
     Route: 048
     Dates: start: 20100823, end: 20100824

REACTIONS (2)
  - ABDOMINAL PAIN UPPER [None]
  - MUSCLE SPASMS [None]
